FAERS Safety Report 7142825-8 (Version None)
Quarter: 2010Q4

REPORT INFORMATION
  Report Type: 
  Country: None (occurrence: None)
  Receive Date: 20101207
  Receipt Date: 20101129
  Transmission Date: 20110411
  Serious: Yes (Other)
  Sender: FDA-Public Use
  Company Number: US-PFIZER INC-2010160326

PATIENT
  Age: 35 Year
  Sex: Female
  Weight: 77.098 kg

DRUGS (5)
  1. EFFEXOR [Suspect]
     Indication: DEPRESSION
     Dosage: 75 MG, 1X/DAY
     Route: 048
     Dates: start: 20090101
  2. MILNACIPRAN HYDROCHLORIDE [Suspect]
     Indication: FIBROMYALGIA
     Dosage: UNK
     Route: 048
     Dates: start: 20100101
  3. TRAZODONE [Concomitant]
     Indication: SLEEP DISORDER
     Dosage: UNK
     Route: 048
  4. STRATTERA [Concomitant]
     Dosage: 40 MG, 1X/DAY
     Route: 048
  5. KLONOPIN [Concomitant]
     Indication: ANXIETY
     Dosage: 0.5 MG, 1X/DAY
     Route: 048

REACTIONS (5)
  - DRUG INEFFECTIVE [None]
  - FEELING HOT [None]
  - FIBROMYALGIA [None]
  - HYPERHIDROSIS [None]
  - SLEEP APNOEA SYNDROME [None]
